FAERS Safety Report 13816701 (Version 1)
Quarter: 2017Q3

REPORT INFORMATION
  Report Type: Spontaneous
  Country: US (occurrence: US)
  Receive Date: 20170731
  Receipt Date: 20170731
  Transmission Date: 20171127
  Serious: No
  Sender: FDA-Public Use
  Company Number: US-JNJFOC-20170602551

PATIENT
  Sex: Male
  Weight: 14.06 kg

DRUGS (2)
  1. CHILDRENS ZYRTEC ALLERGY [Suspect]
     Active Substance: CETIRIZINE HYDROCHLORIDE
     Route: 048
  2. CHILDRENS ZYRTEC ALLERGY [Suspect]
     Active Substance: CETIRIZINE HYDROCHLORIDE
     Indication: MULTIPLE ALLERGIES
     Dosage: TOOK HIS DOSE AND THEN TOOK HIS SISTER^S 2.5MG DOSE
     Route: 048
     Dates: start: 20170531

REACTIONS (2)
  - Extra dose administered [Unknown]
  - Expired product administered [Unknown]

NARRATIVE: CASE EVENT DATE: 20170531
